FAERS Safety Report 20540019 (Version 1)
Quarter: 2022Q1

REPORT INFORMATION
  Report Type: Spontaneous
  Country: CA (occurrence: CA)
  Receive Date: 20220302
  Receipt Date: 20220302
  Transmission Date: 20220423
  Serious: Yes (Other)
  Sender: FDA-Public Use
  Company Number: CA-JNJFOC-20211143643

PATIENT
  Age: 45 Year
  Sex: Female
  Weight: 62 kg

DRUGS (1)
  1. REMICADE [Suspect]
     Active Substance: INFLIXIMAB
     Indication: Crohn^s disease
     Route: 042

REACTIONS (11)
  - Anxiety [Recovered/Resolved]
  - Emotional disorder [Recovered/Resolved]
  - Nervousness [Recovered/Resolved]
  - Throat tightness [Recovered/Resolved]
  - Blood pressure fluctuation [Recovered/Resolved]
  - Erythema [Recovered/Resolved]
  - Urticaria [Recovered/Resolved]
  - Pruritus [Recovered/Resolved]
  - Somnolence [Recovered/Resolved]
  - Infusion related reaction [Recovered/Resolved]
  - Off label use [Recovered/Resolved]
